FAERS Safety Report 15438143 (Version 1)
Quarter: 2018Q3

REPORT INFORMATION
  Report Type: Report from Study
  Country: None (occurrence: US)
  Receive Date: 20180928
  Receipt Date: 20180928
  Transmission Date: 20181010
  Serious: Yes (Other)
  Sender: FDA-Public Use
  Company Number: US-ABBVIE-18K-163-2222582-00

PATIENT
  Age: 58 Year
  Sex: Female

DRUGS (3)
  1. HUMIRA [Suspect]
     Active Substance: ADALIMUMAB
     Indication: PSORIATIC ARTHROPATHY
     Route: 058
     Dates: start: 20171212, end: 2018
  2. HUMIRA [Suspect]
     Active Substance: ADALIMUMAB
     Indication: PSORIASIS
     Route: 058
     Dates: start: 20171012, end: 2017
  3. HUMIRA [Suspect]
     Active Substance: ADALIMUMAB
     Route: 058
     Dates: start: 2018

REACTIONS (26)
  - General physical condition abnormal [Unknown]
  - Skin irritation [Recovering/Resolving]
  - Depression [Recovered/Resolved]
  - Frustration tolerance decreased [Not Recovered/Not Resolved]
  - Pain [Unknown]
  - Suicidal ideation [Unknown]
  - Tooth extraction [Unknown]
  - Raynaud^s phenomenon [Not Recovered/Not Resolved]
  - Pain in extremity [Recovering/Resolving]
  - Psoriasis [Unknown]
  - Gait disturbance [Unknown]
  - Dizziness [Unknown]
  - Hypoaesthesia [Not Recovered/Not Resolved]
  - Influenza [Recovering/Resolving]
  - Discomfort [Unknown]
  - Pyrexia [Unknown]
  - Anxiety [Not Recovered/Not Resolved]
  - Emotional distress [Unknown]
  - Device issue [Unknown]
  - Paranoia [Recovered/Resolved]
  - Loss of personal independence in daily activities [Unknown]
  - Tendonitis [Not Recovered/Not Resolved]
  - Sputum discoloured [Not Recovered/Not Resolved]
  - Arthralgia [Recovering/Resolving]
  - Muscle spasms [Not Recovered/Not Resolved]
  - Neuralgia [Recovering/Resolving]

NARRATIVE: CASE EVENT DATE: 2017
